FAERS Safety Report 20322310 (Version 1)
Quarter: 2022Q1

REPORT INFORMATION
  Report Type: Spontaneous
  Country: US (occurrence: US)
  Receive Date: 20220111
  Receipt Date: 20220111
  Transmission Date: 20220423
  Serious: No
  Sender: FDA-Public Use
  Company Number: US-ABBVIE-21K-163-4174633-00

PATIENT
  Sex: Male

DRUGS (6)
  1. DUOPA [Suspect]
     Active Substance: CARBIDOPA\LEVODOPA
     Indication: Parkinson^s disease
     Dosage: 4.63 MG/ML 20 MG/ML
     Route: 050
     Dates: start: 20210713, end: 20211102
  2. DUOPA [Suspect]
     Active Substance: CARBIDOPA\LEVODOPA
  3. CARBIDOPA\LEVODOPA [Concomitant]
     Active Substance: CARBIDOPA\LEVODOPA
     Indication: Product used for unknown indication
  4. IBUPROFEN [Concomitant]
     Active Substance: IBUPROFEN
     Indication: Product used for unknown indication
  5. PFIZER-BIONTECH COVID-19 VACCINE [Concomitant]
     Active Substance: TOZINAMERAN
     Indication: COVID-19 immunisation
     Dosage: MFR-PFIZER
     Route: 030
     Dates: start: 2021, end: 2021
  6. PFIZER-BIONTECH COVID-19 VACCINE [Concomitant]
     Active Substance: TOZINAMERAN
     Dosage: MFR-PFIZER
     Route: 030
     Dates: start: 2021, end: 2021

REACTIONS (8)
  - Drug ineffective [Not Recovered/Not Resolved]
  - Personality change [Unknown]
  - Pallor [Recovering/Resolving]
  - Hypersomnia [Recovering/Resolving]
  - Haematochezia [Recovered/Resolved]
  - Stoma site irritation [Not Recovered/Not Resolved]
  - Penile discomfort [Recovered/Resolved]
  - Stoma site discomfort [Unknown]

NARRATIVE: CASE EVENT DATE: 20210101
